FAERS Safety Report 6869804-X (Version None)
Quarter: 2010Q3

REPORT INFORMATION
  Report Type: 
  Country: None (occurrence: None)
  Receive Date: 20100722
  Receipt Date: 20080827
  Transmission Date: 20110219
  Serious: No
  Sender: FDA-Public Use
  Company Number: US-PFIZER INC-2008072690

PATIENT
  Sex: Male

DRUGS (2)
  1. CHANTIX [Suspect]
     Indication: SMOKING CESSATION THERAPY
     Dates: start: 20071101, end: 20080101
  2. ALEVE (CAPLET) [Concomitant]

REACTIONS (3)
  - AGITATION [None]
  - PERSONALITY CHANGE [None]
  - WEIGHT INCREASED [None]
